FAERS Safety Report 15136097 (Version 1)
Quarter: 2018Q3

REPORT INFORMATION
  Report Type: Spontaneous
  Country: US (occurrence: US)
  Receive Date: 20180617
  Receipt Date: 20180617
  Transmission Date: 20181010
  Serious: Yes (Other)
  Sender: FDA-Public Use
  Company Number: None

PATIENT
  Age: 43 Year
  Sex: Male

DRUGS (5)
  1. CELEXA [Concomitant]
     Active Substance: CITALOPRAM HYDROBROMIDE
  2. FENIFIBTATE [Concomitant]
  3. CLONAZEPAM 0.5MG SOCLO MANUFACTURER MADE IN CHINA GOT FROM CVS [Suspect]
     Active Substance: CLONAZEPAM
     Indication: OBSESSIVE-COMPULSIVE DISORDER
     Dosage: ?          QUANTITY:60 TABLET(S);?
     Route: 048
     Dates: start: 20180616, end: 20180617
  4. CLONAZEPAM 0.5MG SOCLO MANUFACTURER MADE IN CHINA GOT FROM CVS [Suspect]
     Active Substance: CLONAZEPAM
     Indication: ANXIETY
     Dosage: ?          QUANTITY:60 TABLET(S);?
     Route: 048
     Dates: start: 20180616, end: 20180617
  5. CLARINEX [Suspect]
     Active Substance: DESLORATADINE

REACTIONS (4)
  - Headache [None]
  - Anxiety [None]
  - Withdrawal syndrome [None]
  - Drug effect decreased [None]

NARRATIVE: CASE EVENT DATE: 20180616
